FAERS Safety Report 6417088-9 (Version None)
Quarter: 2009Q4

REPORT INFORMATION
  Report Type: 
  Country: None (occurrence: None)
  Receive Date: 20091028
  Receipt Date: 20091026
  Transmission Date: 20100525
  Serious: Yes (Hospitalization)
  Sender: FDA-Public Use
  Company Number: US-TEVA-213416USA

PATIENT
  Age: 63 Year
  Sex: Female

DRUGS (1)
  1. HYDRALAZINE HCL TABLET 25MG [Suspect]
     Indication: HYPERTENSION

REACTIONS (1)
  - JAUNDICE CHOLESTATIC [None]
